FAERS Safety Report 21710689 (Version 2)
Quarter: 2022Q4

REPORT INFORMATION
  Report Type: Report from Study
  Country: CA (occurrence: CA)
  Receive Date: 20221212
  Receipt Date: 20221219
  Transmission Date: 20230112
  Serious: Yes (Other)
  Sender: FDA-Public Use
  Company Number: CA-002147023-NVSC2022CA283355

PATIENT
  Sex: Female

DRUGS (2)
  1. DEXAMETHASONE [Suspect]
     Active Substance: DEXAMETHASONE
     Indication: Chronic spontaneous urticaria
     Dosage: 1 UNK, OTHER
     Route: 042
     Dates: start: 20220812, end: 2022
  2. BILASTINE [Concomitant]
     Active Substance: BILASTINE
     Indication: Chronic spontaneous urticaria
     Dosage: 4 DOSAGE FORM, QD
     Route: 048
     Dates: start: 202208, end: 20220901

REACTIONS (7)
  - Anaphylactic reaction [Unknown]
  - Angioedema [Unknown]
  - Chronic spontaneous urticaria [Unknown]
  - Swelling face [Unknown]
  - Lip swelling [Unknown]
  - Erythema [Unknown]
  - Product use in unapproved indication [Unknown]
